FAERS Safety Report 13636089 (Version 3)
Quarter: 2017Q3

REPORT INFORMATION
  Report Type: Report from Study
  Country: US (occurrence: US)
  Receive Date: 20170609
  Receipt Date: 20170818
  Transmission Date: 20171127
  Serious: No
  Sender: FDA-Public Use
  Company Number: US-TAKEDA-2017MPI005073

PATIENT
  Sex: Female
  Weight: 83.9 kg

DRUGS (2)
  1. DEXAMETHASONE. [Suspect]
     Active Substance: DEXAMETHASONE
     Indication: PLASMA CELL MYELOMA
     Dosage: UNK, 1/WEEK
     Route: 065
  2. IXAZOMIB [Suspect]
     Active Substance: IXAZOMIB
     Indication: PLASMA CELL MYELOMA
     Dosage: 4 MG, UNK
     Route: 048
     Dates: start: 20170321

REACTIONS (6)
  - Abdominal discomfort [Unknown]
  - Dizziness [Unknown]
  - Hair texture abnormal [Unknown]
  - Hyperhidrosis [Unknown]
  - Faeces discoloured [Unknown]
  - Pallor [Unknown]
